FAERS Safety Report 4700541-3 (Version None)
Quarter: 2005Q2

REPORT INFORMATION
  Report Type: 
  Country: None (occurrence: None)
  Receive Date: 20050627
  Receipt Date: 20050627
  Transmission Date: 20051028
  Serious: No
  Sender: FDA-Public Use
  Company Number: None

PATIENT
  Age: 58 Year
  Sex: Female
  Weight: 113.4 kg

DRUGS (6)
  1. LEVAQUIN [Suspect]
     Dosage: 500 MG    INTRAVENOU
     Route: 042
     Dates: start: 20050614, end: 20050616
  2. ADVAIR [Concomitant]
  3. ZOLOFT [Concomitant]
  4. ZOCOR [Concomitant]
  5. PREDNISONE TAB [Concomitant]
  6. ZITHROMAX [Concomitant]

REACTIONS (1)
  - INFUSION SITE PRURITUS [None]
